FAERS Safety Report 7341361-3 (Version None)
Quarter: 2011Q1

REPORT INFORMATION
  Report Type: 
  Country: None (occurrence: None)
  Receive Date: 20110309
  Receipt Date: 20100908
  Transmission Date: 20110831
  Serious: Yes (Other)
  Sender: FDA-Public Use
  Company Number: US-BAYER-200940995NA

PATIENT
  Sex: Female
  Weight: 86 kg

DRUGS (13)
  1. ZANTAC [Concomitant]
  2. PHENERGAN [Concomitant]
     Dosage: 12.5 MG, UNK
     Route: 048
     Dates: start: 20040221
  3. YASMIN [Suspect]
     Indication: MENSTRUAL DISORDER
     Dosage: UNK
     Dates: start: 20020101, end: 20040101
  4. YASMIN [Suspect]
     Indication: OVARIAN CYST
  5. YAZ [Suspect]
     Indication: OVARIAN CYST
  6. YASMIN [Suspect]
     Indication: ORAL CONTRACEPTION
  7. MOTRIN [Concomitant]
     Dosage: UNK
     Dates: start: 20030101
  8. MEDROXYPROGESTERONE [Concomitant]
     Dosage: 10 MG, CONT
     Route: 048
     Dates: start: 20031216
  9. YAZ [Suspect]
     Indication: MENSTRUAL DISORDER
     Dosage: UNK
     Dates: start: 20020101, end: 20040101
  10. YAZ [Suspect]
     Indication: ORAL CONTRACEPTION
  11. ORTHO EVRA [Concomitant]
  12. AMBIEN [Concomitant]
     Dosage: 5 MG, HS
     Route: 048
     Dates: start: 20031126
  13. PHENTERMINE [Concomitant]
     Dosage: 37.5 MG, CONT
     Route: 048
     Dates: start: 20040314

REACTIONS (4)
  - ABDOMINAL PAIN UPPER [None]
  - RETCHING [None]
  - CHOLELITHIASIS [None]
  - BILIARY COLIC [None]
